FAERS Safety Report 9290042 (Version 1)
Quarter: 2013Q2

REPORT INFORMATION
  Report Type: Spontaneous
  Country: US (occurrence: None)
  Receive Date: 20130514
  Receipt Date: 20130514
  Transmission Date: 20140414
  Serious: Yes (Death)
  Sender: FDA-Public Use
  Company Number: None

PATIENT
  Age: 21 Year
  Sex: Male
  Weight: 80.74 kg

DRUGS (2)
  1. EXJADE 500MG NOVARTIS [Suspect]
     Indication: APLASTIC ANAEMIA
     Route: 048
     Dates: start: 20120510, end: 201305
  2. EXJADE 500MG NOVARTIS [Suspect]
     Indication: UNEVALUABLE EVENT
     Route: 048
     Dates: start: 20120510, end: 201305

REACTIONS (1)
  - Death [None]
